FAERS Safety Report 13253471 (Version 1)
Quarter: 2017Q1

REPORT INFORMATION
  Report Type: Spontaneous
  Country: JP (occurrence: JP)
  Receive Date: 20170220
  Receipt Date: 20170220
  Transmission Date: 20170428
  Serious: Yes (Death)
  Sender: FDA-Public Use
  Company Number: JP-MALLINCKRODT-T201700613

PATIENT
  Age: 65 Year
  Sex: Male
  Weight: 62 kg

DRUGS (9)
  1. METHADONE [Suspect]
     Active Substance: METHADONE HYDROCHLORIDE
     Indication: CANCER PAIN
     Dosage: 5 MG, DAILY DOSE 15 MG
     Route: 051
     Dates: start: 20151030, end: 20151126
  2. LYRICA [Concomitant]
     Active Substance: PREGABALIN
     Indication: ANALGESIC THERAPY
     Dosage: 100 MG, UNK
     Route: 048
     Dates: end: 20151126
  3. CELECOX [Concomitant]
     Active Substance: CELECOXIB
     Indication: ANALGESIC THERAPY
     Dosage: 400 MG, UNK
     Route: 048
     Dates: end: 20151126
  4. DORMICUM (NITRAZEPAM) [Concomitant]
     Active Substance: NITRAZEPAM
     Dosage: 1.875 MG, UNK
     Route: 051
     Dates: start: 20151127, end: 20151127
  5. SERENACE [Concomitant]
     Active Substance: HALOPERIDOL
     Dosage: 6.46 MG, UNK
     Route: 051
     Dates: start: 20151127, end: 20151130
  6. SERENACE [Concomitant]
     Active Substance: HALOPERIDOL
     Dosage: 0.625 MG, UNK
     Route: 051
     Dates: start: 20151127, end: 20151127
  7. OXINORM [Concomitant]
     Active Substance: OXYCODONE HYDROCHLORIDE
     Dosage: 20 MG, PRN
     Route: 048
     Dates: start: 20151029
  8. DORMICUM (NITRAZEPAM) [Concomitant]
     Active Substance: NITRAZEPAM
     Dosage: 32.29 MG, UNK
     Route: 051
     Dates: start: 20151128, end: 20151130
  9. DORMICUM (NITRAZEPAM) [Concomitant]
     Active Substance: NITRAZEPAM
     Dosage: 19.375 MG,, UNK
     Route: 051
     Dates: start: 20151127, end: 20151128

REACTIONS (1)
  - Bladder cancer [Fatal]

NARRATIVE: CASE EVENT DATE: 20151130
